FAERS Safety Report 24810736 (Version 1)
Quarter: 2025Q1

REPORT INFORMATION
  Report Type: Spontaneous
  Country: GB (occurrence: GB)
  Receive Date: 20250106
  Receipt Date: 20250106
  Transmission Date: 20250408
  Serious: Yes (Hospitalization)
  Sender: MYLAN
  Company Number: GB-MYLANLABS-2024M1115600

PATIENT
  Sex: Male
  Weight: 86 kg

DRUGS (11)
  1. CLOZARIL [Suspect]
     Active Substance: CLOZAPINE
     Indication: Schizophrenia
     Dosage: UNK, BID (100MG OM 225MG NOCTE)
     Route: 048
     Dates: start: 20240816
  2. CLOZARIL [Suspect]
     Active Substance: CLOZAPINE
     Indication: Schizoaffective disorder
  3. VALPROIC ACID [Concomitant]
     Active Substance: VALPROIC ACID
     Indication: Schizoaffective disorder
     Dosage: 1 GRAM, BID (1G BD)
     Route: 048
     Dates: start: 20231127
  4. ARIPIPRAZOLE [Concomitant]
     Active Substance: ARIPIPRAZOLE
     Indication: Schizoaffective disorder
     Dosage: 5 MILLIGRAM, QD (5MG OD)
     Route: 048
     Dates: start: 20241003
  5. CHOLECALCIFEROL [Concomitant]
     Active Substance: CHOLECALCIFEROL
     Indication: Prophylaxis
     Dosage: UNK, QD (400 U OD)
     Route: 048
     Dates: start: 20231127
  6. SCOPOLAMINE HYDROBROMIDE [Concomitant]
     Active Substance: SCOPOLAMINE HYDROBROMIDE
     Indication: Salivary hypersecretion
     Dosage: 300 MICROGRAM, TID (300 MCG TDS)
     Route: 048
     Dates: start: 20241002
  7. LANSOPRAZOLE [Concomitant]
     Active Substance: LANSOPRAZOLE
     Indication: Gastrooesophageal reflux disease
     Dosage: 15 MILLIGRAM, QD (15MG OD)
     Route: 048
     Dates: start: 20231127
  8. POLYETHYLENE GLYCOL 3350\POTASSIUM CHLORIDE\SODIUM BICARBONATE\SODIUM [Concomitant]
     Active Substance: POLYETHYLENE GLYCOL 3350\POTASSIUM CHLORIDE\SODIUM BICARBONATE\SODIUM CHLORIDE
     Indication: Constipation
     Dosage: UNK, QD (2 SACHET NOCTE)
     Route: 048
     Dates: start: 20240828
  9. SENNA [Concomitant]
     Active Substance: SENNOSIDES
     Indication: Constipation
     Dosage: 15 MILLIGRAM, QD (15MG NOCTE)
     Route: 048
     Dates: start: 20240913
  10. CYCLIZINE [Concomitant]
     Active Substance: CYCLIZINE
     Indication: Nausea
     Route: 048
     Dates: start: 20241213
  11. IBUPROFEN [Concomitant]
     Active Substance: IBUPROFEN
     Indication: Pain
     Route: 061
     Dates: start: 20240331

REACTIONS (5)
  - Hospitalisation [Unknown]
  - Neutrophil count abnormal [Unknown]
  - Treatment noncompliance [Unknown]
  - Aggression [Unknown]
  - Off label use [Unknown]

NARRATIVE: CASE EVENT DATE: 20240816
